FAERS Safety Report 4612188-8 (Version None)
Quarter: 2005Q2

REPORT INFORMATION
  Report Type: 
  Country: None (occurrence: None)
  Receive Date: 20050308
  Receipt Date: 20041122
  Transmission Date: 20051028
  Serious: Yes (Other)
  Sender: FDA-Public Use
  Company Number: 2004UW24084

PATIENT
  Age: 63 Year
  Sex: Female
  Weight: 92.986 kg

DRUGS (6)
  1. CRESTOR [Suspect]
     Dosage: 10 MG QD PO
     Route: 048
     Dates: end: 20041101
  2. WARFARIN SODIUM [Concomitant]
  3. ATENOLOL [Concomitant]
  4. SYNTHROID [Concomitant]
  5. LEXAPRO [Concomitant]
  6. WELLBUTRIN [Concomitant]

REACTIONS (5)
  - ABDOMINAL DISTENSION [None]
  - BACK PAIN [None]
  - DIFFICULTY IN WALKING [None]
  - DYSPNOEA [None]
  - PAIN IN EXTREMITY [None]
